FAERS Safety Report 5112773-3 (Version None)
Quarter: 2006Q3

REPORT INFORMATION
  Report Type: 
  Country: None (occurrence: None)
  Receive Date: 20060922
  Receipt Date: 20060914
  Transmission Date: 20061208
  Serious: Yes (Hospitalization, Disabling, Other)
  Sender: FDA-Public Use
  Company Number: DE-AVENTIS-200612724DE

PATIENT
  Age: 61 Year
  Sex: Male
  Weight: 73 kg

DRUGS (7)
  1. TAXOTERE [Suspect]
     Indication: PROSTATE CANCER
     Route: 042
     Dates: start: 20051005, end: 20051229
  2. DEXAMETHASONE [Concomitant]
     Indication: PROPHYLAXIS
     Dosage: DOSE: NOT REPORTED
     Dates: start: 20051005, end: 20051229
  3. ANTIEMETICS AND ANTINAUSEANTS [Concomitant]
     Dosage: DOSE: NOT REPORTED
     Dates: start: 20051005, end: 20051229
  4. LH-RH [Concomitant]
     Dosage: DOSE: NOT REPORTED
     Dates: start: 20051005, end: 20051229
  5. INSULIN ACTRAPHANE [Concomitant]
     Indication: DIABETES MELLITUS NON-INSULIN-DEPENDENT
     Route: 058
  6. CIBADREX ^CIBA-GEIGY^ [Concomitant]
     Indication: HYPERTENSION
     Dosage: DOSE: NOT REPORTED
     Route: 048
  7. VERAMEX [Concomitant]
     Indication: HYPERTENSION
     Dosage: DOSE: NOT REPORTED
     Route: 048

REACTIONS (4)
  - FLUID RETENTION [None]
  - GANGRENE [None]
  - OEDEMA [None]
  - SWELLING [None]
